FAERS Safety Report 24187382 (Version 1)
Quarter: 2024Q3

REPORT INFORMATION
  Report Type: Report from Study
  Country: US (occurrence: None)
  Receive Date: 20240808
  Receipt Date: 20240808
  Transmission Date: 20241017
  Serious: Yes (Hospitalization, Other)
  Sender: ASTRAZENECA
  Company Number: 2022A351027

PATIENT
  Age: 64 Year
  Sex: Female

DRUGS (1)
  1. TAGRISSO [Suspect]
     Active Substance: OSIMERTINIB
     Indication: Non-small cell lung cancer
     Route: 048
     Dates: start: 20220818

REACTIONS (4)
  - Confusional state [Unknown]
  - Hypoacusis [Unknown]
  - COVID-19 [Unknown]
  - Pneumonia bacterial [Unknown]

NARRATIVE: CASE EVENT DATE: 20221001
